FAERS Safety Report 5716366-6 (Version None)
Quarter: 2008Q2

REPORT INFORMATION
  Report Type: 
  Country: None (occurrence: None)
  Receive Date: 20080422
  Receipt Date: 20080410
  Transmission Date: 20081010
  Serious: Yes (Hospitalization)
  Sender: FDA-Public Use
  Company Number: 2008VX000888

PATIENT
  Age: 66 Year
  Sex: Female

DRUGS (10)
  1. PERMAX [Suspect]
     Indication: PARKINSON'S DISEASE
     Dosage: 750 UG QD PO; 1250 UG QD PO
     Route: 048
     Dates: end: 20071001
  2. MENESIT [Concomitant]
  3. DOPS [Concomitant]
  4. PRAVASTATIN SODIUM [Concomitant]
  5. BLADDERON [Concomitant]
  6. PRAMIPEXOLE DIHYDROCHLORIDE [Concomitant]
  7. SYMMETREL [Concomitant]
  8. GLYSENNID [Concomitant]
  9. EXCEGRAN [Concomitant]
  10. MUCOSTA [Concomitant]

REACTIONS (1)
  - ERYTHROMELALGIA [None]
